FAERS Safety Report 16671640 (Version 1)
Quarter: 2019Q3

REPORT INFORMATION
  Report Type: Spontaneous
  Country: US (occurrence: US)
  Receive Date: 20190806
  Receipt Date: 20190806
  Transmission Date: 20191004
  Serious: No
  Sender: FDA-Public Use
  Company Number: US-ALKEM LABORATORIES LIMITED-US-ALKEM-2018-07664

PATIENT
  Age: 11 Year
  Sex: Male

DRUGS (3)
  1. LAMOTRIGINE. [Suspect]
     Active Substance: LAMOTRIGINE
     Indication: PARTIAL SEIZURES
     Dosage: 300 MG, QD
     Route: 065
  2. LAMOTRIGINE. [Suspect]
     Active Substance: LAMOTRIGINE
     Indication: TONIC CONVULSION
     Dosage: 425 MG, QD, AFTER 26 DAYS 14 MG/KG PER D
     Route: 065
  3. LAMOTRIGINE. [Suspect]
     Active Substance: LAMOTRIGINE
     Indication: MYOCLONIC EPILEPSY
     Dosage: 300 MG, QD, 10 MG/KG PER D
     Route: 065

REACTIONS (3)
  - Anxiety [Recovered/Resolved]
  - Nervousness [Recovered/Resolved]
  - Psychomotor hyperactivity [Recovered/Resolved]
